FAERS Safety Report 21490289 (Version 2)
Quarter: 2022Q4

REPORT INFORMATION
  Report Type: Spontaneous
  Country: JP (occurrence: JP)
  Receive Date: 20221021
  Receipt Date: 20221117
  Transmission Date: 20230113
  Serious: Yes (Hospitalization, Disabling, Other)
  Sender: FDA-Public Use
  Company Number: JP-NOVARTISPH-NVSJ2022JP096238

PATIENT
  Age: 63 Year
  Sex: Male
  Weight: 60 kg

DRUGS (2)
  1. AFINITOR [Suspect]
     Active Substance: EVEROLIMUS
     Indication: Pancreatic neuroendocrine tumour
     Dosage: 5 MG
     Route: 048
     Dates: start: 20220517, end: 20220807
  2. DECADRON [Suspect]
     Active Substance: DEXAMETHASONE
     Indication: Prophylaxis
     Dosage: 40 ML
     Route: 048
     Dates: start: 202205, end: 202208

REACTIONS (5)
  - Pneumocystis jirovecii pneumonia [Recovered/Resolved with Sequelae]
  - Lymphocyte count decreased [Unknown]
  - Respiratory failure [Recovered/Resolved with Sequelae]
  - Blood albumin decreased [Unknown]
  - Immunosuppression [Unknown]

NARRATIVE: CASE EVENT DATE: 20220807
